FAERS Safety Report 7201284-7 (Version None)
Quarter: 2010Q4

REPORT INFORMATION
  Report Type: 
  Country: None (occurrence: None)
  Receive Date: 20101227
  Receipt Date: 20101227
  Transmission Date: 20110411
  Serious: Yes (Other)
  Sender: FDA-Public Use
  Company Number: None

PATIENT
  Age: 57 Year
  Sex: Female
  Weight: 81.6475 kg

DRUGS (2)
  1. PRISTIQ [Suspect]
     Indication: ASTHENIA
     Dosage: 1 TB EA MORN PO
     Route: 048
     Dates: start: 20100316, end: 20101231
  2. PRISTIQ [Suspect]
     Indication: DEPRESSION
     Dosage: 1 TB EA MORN PO
     Route: 048
     Dates: start: 20100316, end: 20101231

REACTIONS (5)
  - DIZZINESS [None]
  - DYSPNOEA [None]
  - PARAESTHESIA [None]
  - PRODUCT FORMULATION ISSUE [None]
  - URTICARIA [None]
